FAERS Safety Report 8984305 (Version 2)
Quarter: 2013Q3

REPORT INFORMATION
  Report Type: Spontaneous
  Country: US (occurrence: US)
  Receive Date: 20121226
  Receipt Date: 20130912
  Transmission Date: 20140515
  Serious: Yes (Hospitalization, Other)
  Sender: FDA-Public Use
  Company Number: US-009507513-1212USA008190

PATIENT
  Sex: Female
  Weight: 65.76 kg

DRUGS (2)
  1. NUVARING [Suspect]
     Indication: CONTRACEPTION
     Dosage: UNK
     Route: 067
     Dates: start: 20080701, end: 20110204
  2. NUVARING [Suspect]
     Indication: DYSMENORRHOEA

REACTIONS (4)
  - Convulsion [Unknown]
  - Transverse sinus thrombosis [Unknown]
  - Cholecystitis infective [Unknown]
  - Off label use [Unknown]
